FAERS Safety Report 8550977-8 (Version None)
Quarter: 2012Q3

REPORT INFORMATION
  Report Type: 
  Country: None (occurrence: None)
  Receive Date: 20120730
  Receipt Date: 20120724
  Transmission Date: 20120928
  Serious: Yes (Other)
  Sender: FDA-Public Use
  Company Number: US-PFIZER INC-2012178314

PATIENT
  Sex: Female

DRUGS (3)
  1. ENBREL [Suspect]
     Indication: RHEUMATOID ARTHRITIS
     Dosage: 50 MG, QWK
     Dates: start: 20120404
  2. ARAVA [Concomitant]
     Dosage: UNK
     Dates: start: 20120101
  3. METHOTREXATE SODIUM [Suspect]
     Dosage: UNK
     Dates: start: 20111001

REACTIONS (1)
  - RHEUMATOID ARTHRITIS [None]
